FAERS Safety Report 21200623 (Version 2)
Quarter: 2022Q3

REPORT INFORMATION
  Report Type: Spontaneous
  Country: US (occurrence: US)
  Receive Date: 20220811
  Receipt Date: 20220915
  Transmission Date: 20221027
  Serious: Yes (Death, Hospitalization)
  Sender: FDA-Public Use
  Company Number: US-GSK-US2022116734

PATIENT

DRUGS (1)
  1. TRELEGY ELLIPTA [Suspect]
     Active Substance: FLUTICASONE FUROATE\UMECLIDINIUM BROMIDE\VILANTEROL TRIFENATATE
     Indication: Chronic obstructive pulmonary disease
     Dosage: 1 PUFF(S), QD, 100-62.5MCG INHALE 1 PUFF BY MOUTH EVERY MORNING
     Route: 055
     Dates: start: 202009

REACTIONS (2)
  - Chronic obstructive pulmonary disease [Fatal]
  - Adverse event [Recovered/Resolved]

NARRATIVE: CASE EVENT DATE: 20220802
